FAERS Safety Report 10056621 (Version 2)
Quarter: 2014Q2

REPORT INFORMATION
  Report Type: Spontaneous
  Country: CH (occurrence: CH)
  Receive Date: 20140403
  Receipt Date: 20140403
  Transmission Date: 20141212
  Serious: Yes (Other)
  Sender: FDA-Public Use
  Company Number: CH-ACTELION-A-CH2014-96293

PATIENT
  Age: 53 Year
  Sex: Male
  Weight: 68 kg

DRUGS (2)
  1. TRACLEER [Suspect]
     Indication: ARTERIOSPASM CORONARY
     Dosage: 62.5 MG, BID
     Route: 048
     Dates: start: 20140211, end: 20140310
  2. TRACLEER [Suspect]
     Dosage: 125 MG, UNK
     Route: 048
     Dates: start: 20140311

REACTIONS (7)
  - Arteriospasm coronary [Recovered/Resolved]
  - Concomitant disease aggravated [Recovered/Resolved]
  - Angina pectoris [Recovered/Resolved]
  - Tinnitus [Recovered/Resolved]
  - Flushing [Recovered/Resolved]
  - Head discomfort [Recovered/Resolved]
  - Dyspnoea [Recovered/Resolved]
